FAERS Safety Report 18297907 (Version 1)
Quarter: 2020Q3

REPORT INFORMATION
  Report Type: Spontaneous
  Country: AR (occurrence: AR)
  Receive Date: 20200922
  Receipt Date: 20200922
  Transmission Date: 20201103
  Serious: Yes (Other)
  Sender: FDA-Public Use
  Company Number: AR-PFIZER INC-2020280402

PATIENT
  Age: 67 Year
  Sex: Female

DRUGS (2)
  1. XELJANZ [Suspect]
     Active Substance: TOFACITINIB CITRATE
     Indication: RHEUMATOID ARTHRITIS
     Dosage: 5 MG, 2X/DAY
     Dates: start: 20161011
  2. XELJANZ [Suspect]
     Active Substance: TOFACITINIB CITRATE
     Dosage: 5 MG, 2X/DAY
     Dates: start: 20161011

REACTIONS (5)
  - Thyroid disorder [Not Recovered/Not Resolved]
  - Haemoglobinuria [Unknown]
  - Discomfort [Not Recovered/Not Resolved]
  - Stress [Not Recovered/Not Resolved]
  - Gastric disorder [Not Recovered/Not Resolved]
